FAERS Safety Report 4643213-6 (Version None)
Quarter: 2005Q2

REPORT INFORMATION
  Report Type: 
  Country: None (occurrence: None)
  Receive Date: 20050422
  Receipt Date: 20050107
  Transmission Date: 20051028
  Serious: Yes (Hospitalization, Other)
  Sender: FDA-Public Use
  Company Number: 2005026489

PATIENT
  Age: 67 Year
  Sex: Female
  Weight: 68.9467 kg

DRUGS (6)
  1. BEXTRA [Suspect]
     Indication: ARTHRALGIA
     Dosage: 1 IN 1 D, ORAL
     Route: 048
     Dates: start: 20010101, end: 20040101
  2. LEVOTHYROXINE SODIUM [Concomitant]
  3. LABETALOL HCL [Suspect]
  4. AMLODIPINE BESYLATE [Concomitant]
  5. FOLIC ACID [Concomitant]
  6. ERGOCALCIFEROL (ERGOCALCIFEROL) [Concomitant]

REACTIONS (8)
  - ANOREXIA [None]
  - ARTHRALGIA [None]
  - BLOOD MAGNESIUM DECREASED [None]
  - EATING DISORDER [None]
  - MALAISE [None]
  - OEDEMA PERIPHERAL [None]
  - PAIN IN EXTREMITY [None]
  - RENAL DISORDER [None]
